FAERS Safety Report 5341109-8 (Version None)
Quarter: 2007Q2

REPORT INFORMATION
  Report Type: 
  Country: None (occurrence: None)
  Receive Date: 20070405
  Receipt Date: 20070117
  Transmission Date: 20071010
  Serious: Yes (Hospitalization)
  Sender: FDA-Public Use
  Company Number: 2007-00200

PATIENT
  Age: 63 Year
  Sex: Male

DRUGS (2)
  1. FERRLECIT [Suspect]
     Indication: DRUG USE FOR UNKNOWN INDICATION
     Dosage: 125 MG, SINGLE (IN 100ML NS);  INTRAVENOUS
     Route: 042
     Dates: start: 20070101, end: 20070101
  2. FERRLECIT [Suspect]

REACTIONS (1)
  - KLEBSIELLA BACTERAEMIA [None]
